FAERS Safety Report 18115544 (Version 2)
Quarter: 2020Q3

REPORT INFORMATION
  Report Type: Spontaneous
  Country: US (occurrence: US)
  Receive Date: 20200805
  Receipt Date: 20200813
  Transmission Date: 20201103
  Serious: Yes (Hospitalization, Other)
  Sender: FDA-Public Use
  Company Number: US-PFIZER INC-2020273777

PATIENT
  Age: 72 Year
  Sex: Male
  Weight: 82.09 kg

DRUGS (4)
  1. VYNDAQEL [Suspect]
     Active Substance: TAFAMIDIS MEGLUMINE
     Indication: AMYLOIDOSIS
  2. XARELTO [Concomitant]
     Active Substance: RIVAROXABAN
     Indication: ANTICOAGULANT THERAPY
     Dosage: UNK
  3. VYNDAQEL [Suspect]
     Active Substance: TAFAMIDIS MEGLUMINE
     Indication: CARDIAC AMYLOIDOSIS
     Dosage: 20 MG, DAILY (TAKE 1 CAPUSLE BY MOUTH DAILY)
     Route: 048
  4. VYNDAQEL [Suspect]
     Active Substance: TAFAMIDIS MEGLUMINE
     Indication: AMYLOIDOSIS SENILE

REACTIONS (29)
  - Cardiac failure congestive [Unknown]
  - Arteriosclerosis coronary artery [Unknown]
  - Attention deficit hyperactivity disorder [Unknown]
  - Osteoarthritis [Unknown]
  - Restless legs syndrome [Unknown]
  - Rhinorrhoea [Unknown]
  - Mitral valve incompetence [Unknown]
  - Chronic kidney disease [Unknown]
  - Effusion [Unknown]
  - Arthritis [Unknown]
  - Gastrooesophageal reflux disease [Unknown]
  - Atrial fibrillation [Unknown]
  - Acute left ventricular failure [Unknown]
  - Haematuria [Unknown]
  - Actinic keratosis [Unknown]
  - Hypersensitivity [Unknown]
  - Neuropathy peripheral [Unknown]
  - Amyloidosis [Unknown]
  - Chronic left ventricular failure [Unknown]
  - Essential hypertension [Unknown]
  - Spondylitis [Unknown]
  - Left ventricular hypertrophy [Unknown]
  - Left ventricular dysfunction [Unknown]
  - Cardiac amyloidosis [Unknown]
  - Depression [Unknown]
  - Type V hyperlipidaemia [Unknown]
  - Body mass index increased [Unknown]
  - Pericardial effusion [Unknown]
  - Seasonal affective disorder [Unknown]
